FAERS Safety Report 10412318 (Version 2)
Quarter: 2014Q3

REPORT INFORMATION
  Report Type: Spontaneous
  Country: US (occurrence: US)
  Receive Date: 20140827
  Receipt Date: 20140919
  Transmission Date: 20150326
  Serious: No
  Sender: FDA-Public Use
  Company Number: US-PFIZER INC-2014234375

PATIENT
  Age: 81 Year
  Sex: Female
  Weight: 80.2 kg

DRUGS (9)
  1. ACTONEL [Concomitant]
     Active Substance: RISEDRONATE SODIUM
     Dosage: 150 MG, MONTHLY (QMONTH)
     Route: 048
  2. IRON [Concomitant]
     Active Substance: IRON
     Dosage: 28 MG, DAILY
     Route: 048
  3. ZOFRAN [Concomitant]
     Active Substance: ONDANSETRON HYDROCHLORIDE
     Indication: NAUSEA
     Dosage: 4 MG, Q8HR; PRN
     Route: 048
  4. KRILL OIL [Concomitant]
     Active Substance: DIETARY SUPPLEMENT
     Dosage: 1 DF, DAILY
     Route: 048
  5. LEVOTHYROXINE [Concomitant]
     Active Substance: LEVOTHYROXINE
     Dosage: 25 UG, DAILY
     Route: 048
  6. XALKORI [Suspect]
     Active Substance: CRIZOTINIB
     Indication: NON-SMALL CELL LUNG CANCER METASTATIC
     Dosage: 250 MG, 2X/DAY
     Route: 048
     Dates: start: 20140623
  7. ZOFRAN [Concomitant]
     Active Substance: ONDANSETRON HYDROCHLORIDE
     Indication: VOMITING
  8. XALKORI [Suspect]
     Active Substance: CRIZOTINIB
     Dosage: 250 MG, 2X/DAY
     Route: 048
     Dates: start: 20140626
  9. BONE STRENGTH TAKE CARE [Concomitant]
     Dosage: 3000 MG, DAILY
     Route: 048

REACTIONS (13)
  - Nausea [Unknown]
  - Weight decreased [Unknown]
  - Ageusia [Unknown]
  - Constipation [Recovering/Resolving]
  - Diarrhoea [Unknown]
  - Dysphonia [Unknown]
  - Fatigue [Unknown]
  - Oedema peripheral [Unknown]
  - Insomnia [Unknown]
  - Hepatic enzyme increased [Unknown]
  - Decreased appetite [Unknown]
  - Gastrointestinal sounds abnormal [Unknown]
  - Cardiomegaly [Unknown]
